FAERS Safety Report 18748811 (Version 1)
Quarter: 2021Q1

REPORT INFORMATION
  Report Type: Spontaneous
  Country: US (occurrence: US)
  Receive Date: 20210115
  Receipt Date: 20210115
  Transmission Date: 20210419
  Serious: Yes (Death, Other)
  Sender: FDA-Public Use
  Company Number: US-FRESENIUS KABI-FK202100606

PATIENT
  Age: 63 Year
  Sex: Male

DRUGS (6)
  1. TOCILIZUMAB. [Concomitant]
     Active Substance: TOCILIZUMAB
     Indication: PRODUCT USED FOR UNKNOWN INDICATION
     Dosage: UNKNOWN
     Route: 065
  2. LOW MOLECULAR WEIGHT HEPARIN [Suspect]
     Active Substance: UNSPECIFIED INGREDIENT
     Route: 065
  3. LOW MOLECULAR WEIGHT HEPARIN [Suspect]
     Active Substance: UNSPECIFIED INGREDIENT
     Indication: ANTICOAGULANT THERAPY
     Route: 065
  4. ALTEPLASE. [Concomitant]
     Active Substance: ALTEPLASE
     Dosage: UNKNOWN
     Route: 065
  5. ALTEPLASE. [Concomitant]
     Active Substance: ALTEPLASE
     Indication: THROMBOLYSIS
     Dosage: UNKNOWN
     Route: 065
  6. HEPARIN (MANUFACTURER UNKNOWN) [Suspect]
     Active Substance: HEPARIN SODIUM
     Indication: ANTICOAGULANT THERAPY
     Dosage: UNKNOWN
     Route: 065

REACTIONS (4)
  - Haemorrhage intracranial [Fatal]
  - Procedural haemorrhage [Unknown]
  - Septic shock [Fatal]
  - Haemorrhagic transformation stroke [Fatal]
